FAERS Safety Report 8301449-7 (Version None)
Quarter: 2012Q2

REPORT INFORMATION
  Report Type: 
  Country: None (occurrence: None)
  Receive Date: 20120420
  Receipt Date: 20120416
  Transmission Date: 20120825
  Serious: Yes (Hospitalization)
  Sender: FDA-Public Use
  Company Number: GB-ROCHE-1060634

PATIENT
  Sex: Male
  Weight: 79 kg

DRUGS (2)
  1. MABTHERA [Suspect]
     Indication: RHEUMATOID ARTHRITIS
     Dosage: LAST DOSE PRIOR TO EVENT ON 31/AUG/2011
     Dates: start: 20100722
  2. METHOTREXATE [Concomitant]

REACTIONS (1)
  - CHOLELITHIASIS [None]
